FAERS Safety Report 4330089-X (Version None)
Quarter: 2004Q1

REPORT INFORMATION
  Report Type: 
  Country: None (occurrence: None)
  Receive Date: 20040329
  Receipt Date: 20040315
  Transmission Date: 20041129
  Serious: Yes (Hospitalization, Other)
  Sender: FDA-Public Use
  Company Number: 2004198539CA

PATIENT
  Age: 46 Year
  Sex: Female
  Weight: 64 kg

DRUGS (19)
  1. PHARMORUBICIN PFS (EPIRUBICIN HYDROCHLORIDE) [Suspect]
     Indication: CERVIX CARCINOMA
     Dosage: 83 MG, EVERY 21 DAYS, CYCLE 1, IV
     Route: 042
     Dates: start: 20040120, end: 20040120
  2. PHARMORUBICIN PFS (EPIRUBICIN HYDROCHLORIDE) [Suspect]
     Indication: CERVIX CARCINOMA
     Dosage: 83 MG, EVERY 21 DAYS, CYCLE 1, IV
     Route: 042
     Dates: start: 20040210, end: 20040210
  3. CAMPTOSAR [Suspect]
     Indication: CERVIX CARCINOMA
     Dosage: 167 MG, EVERY 21 DAYS, CYCLE 1, IV
     Route: 042
     Dates: start: 20040120, end: 20040120
  4. CAMPTOSAR [Suspect]
     Indication: CERVIX CARCINOMA
     Dosage: 167 MG, EVERY 21 DAYS, CYCLE 1, IV
     Route: 042
     Dates: start: 20040210, end: 20040210
  5. CISPLATIN [Suspect]
     Indication: CERVIX CARCINOMA
     Dosage: 83.3 MG, EVERY 21 DAYS, CYCLE 1, IV
     Route: 042
     Dates: start: 20040120, end: 20040120
  6. CISPLATIN [Suspect]
     Indication: CERVIX CARCINOMA
     Dosage: 83.3 MG, EVERY 21 DAYS, CYCLE 1, IV
     Route: 042
     Dates: start: 20040210, end: 20040210
  7. FENTANYL [Suspect]
     Indication: PELVIC PAIN
     Dosage: 50 UG, EVERY 72 H, TRANSDERMAL
     Route: 062
     Dates: start: 20040128, end: 20040202
  8. DILAUDID [Suspect]
     Dosage: ORAL
     Route: 048
  9. COLACE (DOCUSATE SODIUM) [Concomitant]
  10. FLEET ENEMA (SODUM PHOSPHATE DIBASIC) [Concomitant]
  11. ZOVIRAX [Concomitant]
  12. NYSTATIN [Concomitant]
  13. I.V. SOLUTIONS [Concomitant]
  14. GRAVOL TAB [Concomitant]
  15. ONDANSETRON HCL [Concomitant]
  16. DILAUDID [Concomitant]
  17. MILK OF MAGNESIA TAB [Concomitant]
  18. ATIVAN [Concomitant]
  19. MUCOGESIC MOUTHWASH [Concomitant]

REACTIONS (10)
  - ABDOMINAL PAIN LOWER [None]
  - ANOREXIA [None]
  - BACK PAIN [None]
  - CLAUSTROPHOBIA [None]
  - DEHYDRATION [None]
  - FEBRILE NEUTROPENIA [None]
  - MARKEDLY REDUCED DIETARY INTAKE [None]
  - NAUSEA [None]
  - STOMATITIS [None]
  - VOMITING [None]
